FAERS Safety Report 9980085 (Version 1)
Quarter: 2014Q1

REPORT INFORMATION
  Report Type: Report from Study
  Country: US (occurrence: US)
  Receive Date: 20140307
  Receipt Date: 20140307
  Transmission Date: 20141002
  Serious: No
  Sender: FDA-Public Use
  Company Number: US-ABBVIE-13P-163-1174637-00

PATIENT
  Age: 43 Year
  Sex: Male

DRUGS (3)
  1. HUMIRA [Suspect]
     Indication: COLITIS ULCERATIVE
     Dates: start: 20131031, end: 20131031
  2. HUMIRA [Suspect]
     Dates: start: 20131114, end: 20131114
  3. HUMIRA [Suspect]

REACTIONS (1)
  - Pain in extremity [Recovered/Resolved]
